FAERS Safety Report 7621368-9 (Version None)
Quarter: 2011Q3

REPORT INFORMATION
  Report Type: 
  Country: None (occurrence: None)
  Receive Date: 20110719
  Receipt Date: 20110714
  Transmission Date: 20111222
  Serious: Yes (Death, Other)
  Sender: FDA-Public Use
  Company Number: US-CELGENEUS-163-21880-11061343

PATIENT
  Sex: Male

DRUGS (4)
  1. REVLIMID [Suspect]
     Indication: MULTIPLE MYELOMA
     Dosage: 25 MILLIGRAM
     Route: 048
     Dates: start: 20101209
  2. BORTEZOMIB [Concomitant]
     Dosage: 2.3 MILLIGRAM
     Route: 051
     Dates: start: 20100101, end: 20110201
  3. PREDNISONE [Concomitant]
     Dosage: 60 MILLIGRAM
     Route: 065
     Dates: start: 20101101, end: 20110201
  4. PREDNISONE [Concomitant]
     Indication: THROMBOCYTOPENIC PURPURA

REACTIONS (3)
  - RENAL FAILURE [None]
  - SEPSIS [None]
  - CARDIAC FAILURE CONGESTIVE [None]
